FAERS Safety Report 21536198 (Version 1)
Quarter: 2022Q4

REPORT INFORMATION
  Report Type: Spontaneous
  Country: US (occurrence: US)
  Receive Date: 20221101
  Receipt Date: 20221101
  Transmission Date: 20230112
  Serious: Yes (Other)
  Sender: FDA-Public Use
  Company Number: US-NOVARTISPH-NVSC2022US242479

PATIENT
  Age: 67 Year
  Sex: Male

DRUGS (1)
  1. METAXALONE [Suspect]
     Active Substance: METAXALONE
     Indication: Pain
     Dosage: UNK
     Route: 065

REACTIONS (3)
  - Choking [Unknown]
  - Foreign body in throat [Unknown]
  - Product size issue [Unknown]
